FAERS Safety Report 7744871-X (Version None)
Quarter: 2011Q3

REPORT INFORMATION
  Report Type: 
  Country: None (occurrence: None)
  Receive Date: 20110912
  Receipt Date: 20110906
  Transmission Date: 20111222
  Serious: Yes (Hospitalization)
  Sender: FDA-Public Use
  Company Number: US-GILEAD-2011-0043741

PATIENT
  Sex: Male
  Weight: 68 kg

DRUGS (9)
  1. CREON [Concomitant]
     Indication: PANCREATIC INSUFFICIENCY
     Dates: start: 20100503
  2. CAYSTON [Suspect]
     Indication: CYSTIC FIBROSIS
     Route: 055
     Dates: start: 20110902
  3. ADEK [Concomitant]
     Indication: MEDICAL DIET
     Dates: start: 20060210
  4. NEXIUM [Concomitant]
     Indication: PANCREATIC INSUFFICIENCY
     Dates: start: 20100720
  5. SYMBICORT [Concomitant]
     Indication: LUNG DISORDER
     Dates: start: 20110902
  6. ALBUTEROL SULFATE AUTOHALER [Concomitant]
     Indication: LUNG DISORDER
     Dates: start: 20071025
  7. PULMOZYME [Concomitant]
     Indication: LUNG DISORDER
     Dates: start: 20020401
  8. VITAMIN D [Concomitant]
     Indication: MEDICAL DIET
     Dates: start: 20100727
  9. ZITHROMAX [Concomitant]
     Indication: LUNG DISORDER
     Dates: start: 20070123

REACTIONS (1)
  - LUNG DISORDER [None]
